FAERS Safety Report 15392366 (Version 3)
Quarter: 2018Q3

REPORT INFORMATION
  Report Type: Spontaneous
  Country: BR (occurrence: BR)
  Receive Date: 20180917
  Receipt Date: 20180921
  Transmission Date: 20181010
  Serious: Yes (Other)
  Sender: FDA-Public Use
  Company Number: BR-PFIZER INC-2018367739

PATIENT
  Age: 60 Year
  Sex: Female

DRUGS (5)
  1. LORAX [Suspect]
     Active Substance: LORAZEPAM
     Indication: HYPERTENSION
     Dosage: 1 MG, 2X/DAY
     Dates: start: 2007
  2. LORAX [Suspect]
     Active Substance: LORAZEPAM
     Dosage: 2 TABLETS OF 1MG + HALF OF ONE MORE TABLET OF 1MG
  3. LORAX [Suspect]
     Active Substance: LORAZEPAM
     Dosage: 2MG IN THE MORNING AND 2MG IN THE EVENING
  4. LORAX [Suspect]
     Active Substance: LORAZEPAM
     Dosage: 1 MG, 2X/DAY
  5. ESCITALOPRAM OXALATE. [Concomitant]
     Active Substance: ESCITALOPRAM OXALATE
     Indication: ANXIETY
     Dosage: UNK

REACTIONS (7)
  - Renal cancer [Unknown]
  - Wrong technique in product usage process [Unknown]
  - Epistaxis [Unknown]
  - Cerebrovascular accident [Unknown]
  - Obesity [Unknown]
  - Abdominal hernia [Unknown]
  - Incorrect route of drug administration [Unknown]
